FAERS Safety Report 12572202 (Version 2)
Quarter: 2016Q3

REPORT INFORMATION
  Report Type: Spontaneous
  Country: US (occurrence: US)
  Receive Date: 20160719
  Receipt Date: 20160906
  Transmission Date: 20161109
  Serious: Yes (Other)
  Sender: FDA-Public Use
  Company Number: US-BAYER-2016-133592

PATIENT
  Age: 40 Year
  Sex: Female

DRUGS (3)
  1. BETASERON [Suspect]
     Active Substance: INTERFERON BETA-1B
     Indication: MULTIPLE SCLEROSIS
     Dosage: 0.25 MG, QOD
     Route: 058
     Dates: start: 20100520
  2. BETACONNECT [Suspect]
     Active Substance: DEVICE
  3. BETASERON [Suspect]
     Active Substance: INTERFERON BETA-1B
     Indication: MULTIPLE SCLEROSIS
     Dosage: 8 MIU, UNK
     Route: 058
     Dates: start: 20100526

REACTIONS (4)
  - Injection site erythema [None]
  - Urinary tract infection [Recovered/Resolved]
  - Multiple sclerosis [Not Recovered/Not Resolved]
  - Fatigue [Not Recovered/Not Resolved]

NARRATIVE: CASE EVENT DATE: 201606
